FAERS Safety Report 9192007 (Version 1)
Quarter: 2013Q1

REPORT INFORMATION
  Report Type: Spontaneous
  Country: GB (occurrence: None)
  Receive Date: 20130325
  Receipt Date: 20130325
  Transmission Date: 20140127
  Serious: Yes (Other)
  Sender: FDA-Public Use
  Company Number: E2B_00000648

PATIENT
  Age: 77 Year
  Sex: Female
  Weight: 57 kg

DRUGS (3)
  1. SIMVASTATIN [Suspect]
     Indication: BLOOD CHOLESTEROL INCREASED
     Route: 048
     Dates: end: 20121210
  2. THYROXINE (UNKNOWN) [Concomitant]
  3. ASPIRIN (UNKNOWN) [Concomitant]

REACTIONS (3)
  - Sensation of heaviness [None]
  - Gait disturbance [None]
  - Pain in extremity [None]
